FAERS Safety Report 5521602-5 (Version None)
Quarter: 2007Q4

REPORT INFORMATION
  Report Type: 
  Country: None (occurrence: None)
  Receive Date: 20071120
  Receipt Date: 20071108
  Transmission Date: 20080405
  Serious: Yes (Other)
  Sender: FDA-Public Use
  Company Number: FR-BRISTOL-MYERS SQUIBB COMPANY-13983341

PATIENT

DRUGS (1)
  1. ENDOXAN [Suspect]
     Indication: SCLERODERMA
     Route: 042

REACTIONS (3)
  - PYREXIA [None]
  - RASH [None]
  - SHOCK [None]
